FAERS Safety Report 21346360 (Version 1)
Quarter: 2022Q3

REPORT INFORMATION
  Report Type: Spontaneous
  Country: CN (occurrence: CN)
  Receive Date: 20220917
  Receipt Date: 20220917
  Transmission Date: 20221026
  Serious: Yes (Death, Life-Threatening, Hospitalization, Other)
  Sender: FDA-Public Use
  Company Number: CN-MLMSERVICE-2022090137742231

PATIENT
  Age: 35 Year
  Sex: Male

DRUGS (21)
  1. MYCOPHENOLATE MOFETIL [Suspect]
     Active Substance: MYCOPHENOLATE MOFETIL
     Indication: Immunosuppressant drug therapy
  2. TACROLIMUS [Suspect]
     Active Substance: TACROLIMUS
     Indication: Immunosuppressant drug therapy
     Dosage: USED AGAIN ON THE 63RD DAY
  3. THYMOCYTE IMMUNE GLOBULIN NOS [Suspect]
     Active Substance: THYMOCYTE IMMUNE GLOBULIN NOS
     Indication: Delayed graft function
     Dosage: 4TH DAY AFTER SURGERY
  4. PREDNISONE [Suspect]
     Active Substance: PREDNISONE
     Indication: Immunosuppressant drug therapy
  5. BASILIXIMAB [Suspect]
     Active Substance: BASILIXIMAB
     Indication: Delayed graft function
     Dosage: DURING THE OPERATION
  6. METHYLPREDNISOLONE [Suspect]
     Active Substance: METHYLPREDNISOLONE
     Indication: Delayed graft function
     Dosage: 4TH DAY AFTER SURGERY
  7. SULFAMETHOXAZOLE\TRIMETHOPRIM [Concomitant]
     Active Substance: SULFAMETHOXAZOLE\TRIMETHOPRIM
     Indication: Antifungal prophylaxis
     Route: 048
  8. METHYLPREDNISOLONE [Suspect]
     Active Substance: METHYLPREDNISOLONE
     Indication: Delayed graft function
     Dosage: 3RD DAY AFTER SURGERY
  9. METHYLPREDNISOLONE [Suspect]
     Active Substance: METHYLPREDNISOLONE
     Indication: Delayed graft function
     Dosage: 5TH DAY AFTER SURGERY
  10. METHYLPREDNISOLONE [Suspect]
     Active Substance: METHYLPREDNISOLONE
     Indication: Immunosuppressant drug therapy
     Dosage: 4TH DAY AFTER SURGERY
  11. THYMOCYTE IMMUNE GLOBULIN NOS [Suspect]
     Active Substance: THYMOCYTE IMMUNE GLOBULIN NOS
     Indication: Delayed graft function
     Dosage: 1ST DAY AFTER SURGERY
  12. THYMOCYTE IMMUNE GLOBULIN NOS [Suspect]
     Active Substance: THYMOCYTE IMMUNE GLOBULIN NOS
     Indication: Delayed graft function
     Dosage: 5TH DAY AFTER SURGERY
  13. THYMOCYTE IMMUNE GLOBULIN NOS [Suspect]
     Active Substance: THYMOCYTE IMMUNE GLOBULIN NOS
     Indication: Delayed graft function
     Dosage: 2ND DAY AFTER SURGERY
  14. THYMOCYTE IMMUNE GLOBULIN NOS [Suspect]
     Active Substance: THYMOCYTE IMMUNE GLOBULIN NOS
     Indication: Delayed graft function
     Dosage: IMMUNE INDUCTION THERAPY
  15. THYMOCYTE IMMUNE GLOBULIN NOS [Suspect]
     Active Substance: THYMOCYTE IMMUNE GLOBULIN NOS
     Indication: Delayed graft function
     Dosage: 3RD DAY AFTER SURGERY
  16. BASILIXIMAB [Suspect]
     Active Substance: BASILIXIMAB
     Indication: Delayed graft function
     Dosage: IMMUNE INDUCTION THERAPY
  17. TACROLIMUS [Suspect]
     Active Substance: TACROLIMUS
     Indication: Immunosuppressant drug therapy
     Dosage: 6-8 NG/ML
  18. METHYLPREDNISOLONE [Suspect]
     Active Substance: METHYLPREDNISOLONE
     Indication: Delayed graft function
     Dosage: IMMUNE INDUCTION THERAPY
  19. METHYLPREDNISOLONE [Suspect]
     Active Substance: METHYLPREDNISOLONE
     Indication: Delayed graft function
     Dosage: DURING THE OPERATION
  20. METHYLPREDNISOLONE [Suspect]
     Active Substance: METHYLPREDNISOLONE
     Indication: Delayed graft function
     Dosage: 2ND DAY AFTER SURGERY
  21. METHYLPREDNISOLONE [Suspect]
     Active Substance: METHYLPREDNISOLONE
     Indication: Delayed graft function
     Dosage: 1ST DAY AFTER SURGERY

REACTIONS (13)
  - Anuria [Fatal]
  - Tricuspid valve incompetence [Fatal]
  - Acute myocardial infarction [Fatal]
  - Mitral valve incompetence [Fatal]
  - Angina pectoris [Fatal]
  - Disseminated intravascular coagulation [Fatal]
  - Endocarditis bacterial [Fatal]
  - Septic shock [Fatal]
  - Corynebacterium infection [Fatal]
  - Renal haemorrhage [Fatal]
  - Ventricular fibrillation [Fatal]
  - Cardiac arrest [Fatal]
  - Peripheral artery thrombosis [Fatal]
